FAERS Safety Report 6127895-8 (Version None)
Quarter: 2009Q1

REPORT INFORMATION
  Report Type: 
  Country: None (occurrence: None)
  Receive Date: 20090320
  Receipt Date: 20090320
  Transmission Date: 20090719
  Serious: Yes (Death, Hospitalization)
  Sender: FDA-Public Use
  Company Number: None

PATIENT
  Age: 30 Year
  Sex: Female
  Weight: 113.3993 kg

DRUGS (3)
  1. GEODON [Suspect]
     Indication: DEPRESSION
     Dosage: 40 MG CAPSULES 6 CARDS X 2 CAPSULES
     Dates: start: 20081101
  2. GEODON [Suspect]
     Indication: ANXIETY
     Dosage: 40 MG CAPSULES 6 CARDS X 2 CAPSULES
     Dates: start: 20081110
  3. BEACON LIGHT [Concomitant]

REACTIONS (1)
  - CORONARY ARTERY OCCLUSION [None]
